FAERS Safety Report 19362803 (Version 1)
Quarter: 2021Q2

REPORT INFORMATION
  Report Type: Spontaneous
  Country: BG (occurrence: BG)
  Receive Date: 20210602
  Receipt Date: 20210602
  Transmission Date: 20210717
  Serious: Yes (Other)
  Sender: FDA-Public Use
  Company Number: NVSC2021BG122017

PATIENT
  Age: 76 Year
  Sex: Male

DRUGS (8)
  1. ZOLEDRONIC ACID [Suspect]
     Active Substance: ZOLEDRONIC ACID
     Indication: METASTASES TO BONE
  2. CYPROTERONE ACETATE [Concomitant]
     Active Substance: CYPROTERONE ACETATE
     Indication: ANDROGEN THERAPY
  3. STRONTIUM [Concomitant]
     Active Substance: STRONTIUM
     Indication: METASTASES TO BONE
  4. STRONTIUM [Concomitant]
     Active Substance: STRONTIUM
     Indication: RADIOTHERAPY
     Dosage: UNK
     Route: 065
  5. CYPROTERONE ACETATE [Concomitant]
     Active Substance: CYPROTERONE ACETATE
     Indication: ADENOCARCINOMA
  6. CYPROTERONE ACETATE [Concomitant]
     Active Substance: CYPROTERONE ACETATE
     Indication: METASTASES TO BONE
     Dosage: UNK
     Route: 065
  7. ZOLEDRONIC ACID [Suspect]
     Active Substance: ZOLEDRONIC ACID
     Indication: ADENOCARCINOMA
     Dosage: UNK
     Route: 065
     Dates: end: 201401
  8. STRONTIUM [Concomitant]
     Active Substance: STRONTIUM
     Indication: ADENOCARCINOMA

REACTIONS (2)
  - Osteonecrosis [Unknown]
  - Product use in unapproved indication [Unknown]
